FAERS Safety Report 18495100 (Version 1)
Quarter: 2020Q4

REPORT INFORMATION
  Report Type: Spontaneous
  Country: US (occurrence: US)
  Receive Date: 20201111
  Receipt Date: 20201111
  Transmission Date: 20210114
  Serious: Yes (Other)
  Sender: FDA-Public Use
  Company Number: None

PATIENT
  Age: 57 Year
  Sex: Female
  Weight: 70.31 kg

DRUGS (11)
  1. LETROZOLE. [Concomitant]
     Active Substance: LETROZOLE
  2. LIDOCAINE PRILOCAINE [Concomitant]
     Active Substance: LIDOCAINE\PRILOCAINE
  3. MOTRIN [Concomitant]
     Active Substance: IBUPROFEN
  4. IBRANCE [Suspect]
     Active Substance: PALBOCICLIB
     Indication: BREAST CANCER
     Route: 048
     Dates: start: 20201016, end: 20201111
  5. PROCHLORPERAZINE. [Concomitant]
     Active Substance: PROCHLORPERAZINE
  6. TYLENOL [Concomitant]
     Active Substance: ACETAMINOPHEN
  7. VALIUM [Concomitant]
     Active Substance: DIAZEPAM
  8. MULTIVITAMIN [Concomitant]
     Active Substance: VITAMINS
  9. DURAGESIC [Concomitant]
     Active Substance: FENTANYL
  10. ALEVE [Concomitant]
     Active Substance: NAPROXEN SODIUM
  11. ZOFRAN [Concomitant]
     Active Substance: ONDANSETRON HYDROCHLORIDE

REACTIONS (2)
  - Oropharyngeal pain [None]
  - Full blood count decreased [None]

NARRATIVE: CASE EVENT DATE: 20201111
